FAERS Safety Report 18699627 (Version 3)
Quarter: 2022Q4

REPORT INFORMATION
  Report Type: Spontaneous
  Country: US (occurrence: US)
  Receive Date: 20210104
  Receipt Date: 20221201
  Transmission Date: 20230113
  Serious: Yes (Other)
  Sender: FDA-Public Use
  Company Number: US-PFIZER INC-2020517368

PATIENT
  Age: 87 Year
  Sex: Female

DRUGS (2)
  1. XELJANZ XR [Suspect]
     Active Substance: TOFACITINIB CITRATE
     Dosage: 11 MG
     Dates: start: 20201201
  2. XELJANZ XR [Suspect]
     Active Substance: TOFACITINIB CITRATE
     Dosage: 11 MG
     Dates: start: 20201204

REACTIONS (5)
  - Pelvic fracture [Unknown]
  - Product dose omission issue [Unknown]
  - Arthralgia [Unknown]
  - Chest pain [Unknown]
  - Fall [Unknown]

NARRATIVE: CASE EVENT DATE: 20201201
